FAERS Safety Report 22040314 (Version 2)
Quarter: 2023Q1

REPORT INFORMATION
  Report Type: Spontaneous
  Country: IT (occurrence: IT)
  Receive Date: 20230227
  Receipt Date: 20230324
  Transmission Date: 20230417
  Serious: Yes (Other)
  Sender: FDA-Public Use
  Company Number: None

PATIENT
  Age: 32 Year
  Sex: Female

DRUGS (4)
  1. GABAPENTIN [Suspect]
     Active Substance: GABAPENTIN
     Indication: Product used for unknown indication
     Dosage: 10 DOSAGE FORM (DOSAGGIO: 10 UNITA DI MISURA:UNITA POSOLOGICA FREQUENZA SOMMINISTRAZIONE TOTALE VIA
     Route: 065
     Dates: start: 20220826, end: 20220826
  2. FLUOXETINE [Suspect]
     Active Substance: FLUOXETINE HYDROCHLORIDE
     Indication: Affective disorder
     Dosage: UNK (FREQUENZA SOMMINISTRAZIONE: TOTALEVIA SOMMINISTRAZIONE: ORALE)
     Route: 065
     Dates: start: 20220826, end: 20220826
  3. CYANOCOBALAMIN\FOLIC ACID\PYRIDOXINE HYDROCHLORIDE [Suspect]
     Active Substance: CYANOCOBALAMIN\FOLIC ACID\PYRIDOXINE HYDROCHLORIDE
     Indication: Personality disorder
     Dosage: UNK (FREQUENZA SOMMINISTRAZIONE: TOTALEVIA SOMMINISTRAZIONE: ORALE)
     Route: 048
     Dates: start: 20220826, end: 20220826
  4. AKINETON [Suspect]
     Active Substance: BIPERIDEN HYDROCHLORIDE
     Indication: Product used for unknown indication
     Dosage: 10 DOSAGE FORM (DOSAGGIO: 10UNITA DI MISURA: UNITA POSOLOGICA FREQUENZA SOMMINISTRAZIONE: TOTALE VIA
     Route: 065
     Dates: start: 20220826, end: 20220826

REACTIONS (2)
  - Drug abuse [Recovering/Resolving]
  - Somnolence [Recovering/Resolving]

NARRATIVE: CASE EVENT DATE: 20220826
